FAERS Safety Report 12352843 (Version 1)
Quarter: 2016Q2

REPORT INFORMATION
  Report Type: Spontaneous
  Country: US (occurrence: US)
  Receive Date: 20160510
  Receipt Date: 20160510
  Transmission Date: 20160815
  Serious: No
  Sender: FDA-Public Use
  Company Number: US-BRISTOL-MYERS SQUIBB COMPANY-BMS-2016-036349

PATIENT
  Sex: Female

DRUGS (1)
  1. ABILIFY [Suspect]
     Active Substance: ARIPIPRAZOLE
     Indication: PRODUCT USED FOR UNKNOWN INDICATION
     Dosage: 1 DF, QD; 1/2 OF A TABLET
     Route: 065

REACTIONS (4)
  - Drug dose omission [Unknown]
  - Libido increased [Not Recovered/Not Resolved]
  - Wrong technique in product usage process [Unknown]
  - Anger [Unknown]
